FAERS Safety Report 24667066 (Version 3)
Quarter: 2024Q4

REPORT INFORMATION
  Report Type: Spontaneous
  Country: BR (occurrence: BR)
  Receive Date: 20241126
  Receipt Date: 20241205
  Transmission Date: 20250115
  Serious: Yes (Other)
  Sender: NOVARTIS
  Company Number: BR-002147023-NVSC2024BR225853

PATIENT
  Age: 41 Year
  Sex: Female
  Weight: 58 kg

DRUGS (12)
  1. ZOMETA [Suspect]
     Active Substance: ZOLEDRONIC ACID
     Indication: Lung neoplasm malignant
     Dosage: UNK (4MG/100ML)
     Route: 065
  2. ZOMETA [Suspect]
     Active Substance: ZOLEDRONIC ACID
     Indication: Metastases to bone
     Dosage: 3 ML (DECREASED APPLICATION)
     Route: 065
  3. ZOMETA [Suspect]
     Active Substance: ZOLEDRONIC ACID
     Dosage: UNK (CURRENTLY 3MG, BUT FOR 12 MONTHS, 4MG DOSE)
     Route: 042
     Dates: start: 202303
  4. ZOMETA [Suspect]
     Active Substance: ZOLEDRONIC ACID
     Dosage: 3 MG
     Route: 065
     Dates: start: 202403
  5. ENTRESTO [Suspect]
     Active Substance: SACUBITRIL\VALSARTAN
     Indication: Cardiac failure
     Dosage: 400 MG, QD
     Route: 048
     Dates: start: 2020
  6. LEVOTHYROXINE [Concomitant]
     Active Substance: LEVOTHYROXINE
     Indication: Hypothyroidism
     Dosage: 150 MG (IN USE TODAY)
     Route: 048
     Dates: start: 2005
  7. SELPERCATINIB [Concomitant]
     Active Substance: SELPERCATINIB
     Indication: Product used for unknown indication
     Dosage: 240 MG, QD (IN USE TODAY)
     Route: 048
     Dates: start: 202401
  8. SYNTHROID [Concomitant]
     Active Substance: LEVOTHYROXINE SODIUM
     Indication: Product used for unknown indication
     Dosage: UNK (150 MCG)
     Route: 065
  9. BUPROPION [Concomitant]
     Active Substance: BUPROPION
     Indication: Product used for unknown indication
     Dosage: 150 MG
     Route: 065
  10. ESTRADIOL [Concomitant]
     Active Substance: ESTRADIOL
     Indication: Product used for unknown indication
     Dosage: 1 MG
     Route: 065
  11. SIMVASTATIN [Concomitant]
     Active Substance: SIMVASTATIN
     Indication: Product used for unknown indication
     Dosage: 20 MG
     Route: 065
  12. BROMOPRIDE [Concomitant]
     Active Substance: BROMOPRIDE
     Indication: Product used for unknown indication
     Dosage: 10 MG
     Route: 065

REACTIONS (34)
  - Osteonecrosis of jaw [Not Recovered/Not Resolved]
  - Paranasal sinus necrosis [Not Recovered/Not Resolved]
  - Nephropathy toxic [Unknown]
  - Myocardial infarction [Unknown]
  - Lymphangitis [Unknown]
  - Adenocarcinoma metastatic [Unknown]
  - Osteonecrosis [Unknown]
  - Renal disorder [Recovered/Resolved with Sequelae]
  - Blood creatine increased [Recovered/Resolved]
  - Central nervous system lesion [Unknown]
  - Bone pain [Unknown]
  - Pyrexia [Unknown]
  - Hyperhidrosis [Unknown]
  - Nausea [Unknown]
  - Mucosal inflammation [Unknown]
  - Asthenia [Unknown]
  - Diarrhoea [Unknown]
  - Oedema [Unknown]
  - Haemorrhage [Unknown]
  - Decreased appetite [Unknown]
  - Dysgeusia [Unknown]
  - Haemoglobin decreased [Unknown]
  - Heart rate decreased [Unknown]
  - Pulmonary arterial pressure abnormal [Unknown]
  - Pulmonary septal thickening [Unknown]
  - Pulmonary mass [Unknown]
  - Bone lesion [Unknown]
  - Gingival erythema [Unknown]
  - Pain [Unknown]
  - Weight decreased [Unknown]
  - Tooth disorder [Unknown]
  - Breath odour [Unknown]
  - Product availability issue [Not Recovered/Not Resolved]
  - Product dose omission issue [Not Recovered/Not Resolved]

NARRATIVE: CASE EVENT DATE: 20230404
